FAERS Safety Report 18565277 (Version 1)
Quarter: 2020Q4

REPORT INFORMATION
  Report Type: Spontaneous
  Country: JP (occurrence: JP)
  Receive Date: 20201201
  Receipt Date: 20201201
  Transmission Date: 20210114
  Serious: Yes (Life-Threatening, Hospitalization)
  Sender: FDA-Public Use
  Company Number: JP-DSJP-DSJ-2020-135987

PATIENT
  Age: 8 Decade
  Sex: Female

DRUGS (3)
  1. LIXIANA OD TABLETS [Suspect]
     Active Substance: EDOXABAN TOSYLATE
     Indication: PRODUCT USED FOR UNKNOWN INDICATION
     Dosage: UNK
     Route: 065
  2. ADRENALINE [Concomitant]
     Active Substance: EPINEPHRINE
     Indication: SEPSIS
  3. ADRENALINE [Concomitant]
     Active Substance: EPINEPHRINE
     Indication: DEHYDRATION

REACTIONS (1)
  - Diarrhoea [Not Recovered/Not Resolved]
